FAERS Safety Report 9705437 (Version 1)
Quarter: 2013Q4

REPORT INFORMATION
  Report Type: Spontaneous
  Country: FR (occurrence: FR)
  Receive Date: 20131122
  Receipt Date: 20131122
  Transmission Date: 20140711
  Serious: Yes (Hospitalization)
  Sender: FDA-Public Use
  Company Number: FR-ACTAVIS-2013-21244

PATIENT
  Age: 65 Year
  Sex: Female

DRUGS (6)
  1. DOCETAXEL ACTAVIS [Suspect]
     Indication: BREAST CANCER
     Dosage: 132 MG, DAILY
     Route: 042
     Dates: start: 20130920, end: 20131011
  2. DOCETAXEL ACTAVIS [Suspect]
     Dosage: 132 MG, DAILY
     Route: 042
     Dates: start: 20130920, end: 20131011
  3. ENDOXAN /00021101/ [Suspect]
     Indication: BREAST CANCER
     Dosage: 1060 MG, DAILY
     Route: 042
     Dates: start: 20130920, end: 20131011
  4. CORTANCYL [Concomitant]
     Indication: PRODUCT USED FOR UNKNOWN INDICATION
     Dosage: 25 MG, BID
  5. CORTANCYL [Concomitant]
     Dosage: 100 MG, DAILY
  6. ZOPHREN                            /00955301/ [Concomitant]
     Indication: PRODUCT USED FOR UNKNOWN INDICATION
     Dosage: 8 MG, UNK
     Route: 042

REACTIONS (2)
  - Urticaria [Recovered/Resolved]
  - Angioedema [Recovering/Resolving]
